FAERS Safety Report 22006661 (Version 1)
Quarter: 2023Q1

REPORT INFORMATION
  Report Type: Other
  Country: None (occurrence: GB)
  Receive Date: 20230217
  Receipt Date: 20230217
  Transmission Date: 20230418
  Serious: Yes (Hospitalization, Other)
  Sender: FDA-Public Use
  Company Number: GB-Spectra Medical Devices, LLC-2138080

PATIENT
  Age: 40 Year
  Sex: Female
  Weight: 45 kg

DRUGS (8)
  1. SODIUM CHLORIDE [Suspect]
     Active Substance: SODIUM CHLORIDE
     Indication: Abdominal distension
     Route: 065
  2. FENTANYL [Concomitant]
     Active Substance: FENTANYL
     Route: 065
  3. MIDAZOLAM [Concomitant]
     Active Substance: MIDAZOLAM
     Route: 065
  4. PROPOFOL [Concomitant]
     Active Substance: PROPOFOL
     Route: 065
  5. ONDANSETRON [Concomitant]
     Active Substance: ONDANSETRON
     Route: 065
  6. AMOXICILLIN\CLAVULANATE POTASSIUM [Concomitant]
     Active Substance: AMOXICILLIN\CLAVULANATE POTASSIUM
     Route: 065
  7. SEVOFLURANE [Concomitant]
     Active Substance: SEVOFLURANE
     Route: 065
  8. LACTATED RINGERS SOLUTION [Suspect]
     Active Substance: CALCIUM CHLORIDE\POTASSIUM CHLORIDE\SODIUM CHLORIDE\SODIUM LACTATE
     Route: 065

REACTIONS (4)
  - Acute pulmonary oedema [Recovering/Resolving]
  - Respiratory disorder [Recovering/Resolving]
  - Acidosis hyperchloraemic [Recovering/Resolving]
  - Hypervolaemia [Recovering/Resolving]
